FAERS Safety Report 13539529 (Version 2)
Quarter: 2017Q3

REPORT INFORMATION
  Report Type: Spontaneous
  Country: US (occurrence: US)
  Receive Date: 20170512
  Receipt Date: 20170705
  Transmission Date: 20171127
  Serious: No
  Sender: FDA-Public Use
  Company Number: US-LUNDBECK-DKLU2029556

PATIENT
  Age: 16 Year
  Sex: Female

DRUGS (1)
  1. NORTHERA [Suspect]
     Active Substance: DROXIDOPA
     Indication: PRODUCT USED FOR UNKNOWN INDICATION
     Dosage: SCHEDULE / ON HOLD
     Route: 065
     Dates: start: 201703

REACTIONS (1)
  - Headache [Unknown]

NARRATIVE: CASE EVENT DATE: 201703
